FAERS Safety Report 6301973-2 (Version None)
Quarter: 2009Q3

REPORT INFORMATION
  Report Type: 
  Country: None (occurrence: None)
  Receive Date: 20090807
  Receipt Date: 20090804
  Transmission Date: 20100115
  Serious: Yes (Hospitalization)
  Sender: FDA-Public Use
  Company Number: PHHO2009US03557

PATIENT
  Sex: Male
  Weight: 96.3 kg

DRUGS (17)
  1. BLINDED ACZ885 ACZ+SOLINF+COPD [Suspect]
     Indication: CHRONIC OBSTRUCTIVE PULMONARY DISEASE
     Dosage: DOUBLE-BLIND
     Route: 042
     Dates: start: 20080509, end: 20090218
  2. BLINDED NO TREATMENT RECEIVED NOMED [Suspect]
     Indication: CHRONIC OBSTRUCTIVE PULMONARY DISEASE
     Dosage: DOUBLE-BLIND
     Route: 042
     Dates: start: 20080509, end: 20090218
  3. BLINDED PLACEBO COMP-PLA+ [Suspect]
     Indication: CHRONIC OBSTRUCTIVE PULMONARY DISEASE
     Dosage: DOUBLE-BLIND
     Route: 042
     Dates: start: 20080509, end: 20090218
  4. SPIRIVA [Concomitant]
     Indication: CHRONIC OBSTRUCTIVE PULMONARY DISEASE
     Dosage: 18 DF, QD
     Dates: start: 20060101
  5. ADVAIR HFA [Concomitant]
     Indication: CHRONIC OBSTRUCTIVE PULMONARY DISEASE
     Dosage: 500 / 50MCG
     Dates: start: 20080520
  6. LISINOPRIL [Concomitant]
     Indication: HYPERTENSION
     Dosage: 5 MG, QD
     Route: 048
     Dates: start: 20070101
  7. SIMVASTATIN [Concomitant]
     Indication: HYPERLIPIDAEMIA
     Dosage: 20 MG, QD
     Route: 048
     Dates: start: 20070101
  8. SIMVASTATIN [Concomitant]
     Dosage: 20 MG, ONCE/SINGLE
     Route: 048
  9. ASPIRIN [Concomitant]
     Indication: CARDIOVASCULAR EVENT PROPHYLAXIS
     Dosage: 81 MG, QD
     Route: 048
     Dates: start: 20070101
  10. ASPIRIN [Concomitant]
     Dosage: UNK
     Route: 048
     Dates: start: 20090311, end: 20090311
  11. GUAIFENESIN [Concomitant]
     Indication: PULMONARY CONGESTION
     Dosage: 600 MG, BID, PRN
  12. GUAIFENESIN [Concomitant]
     Dosage: 600 MG, PRN
     Route: 048
     Dates: start: 20090311
  13. LASIX [Concomitant]
     Dosage: 10 MG, 1 PILL ONLY
  14. ZOCOR [Concomitant]
     Dosage: 20 MG, QD
  15. AVELOX [Concomitant]
     Indication: CHRONIC OBSTRUCTIVE PULMONARY DISEASE
     Dosage: 400 MG, QD
     Route: 048
     Dates: start: 20090218, end: 20090227
  16. ALBUTEROL [Concomitant]
     Indication: CHRONIC OBSTRUCTIVE PULMONARY DISEASE
     Dosage: 90 DF, QD
     Dates: start: 20080401
  17. ALBUTEROL [Concomitant]
     Dosage: 10 MG, BID
     Dates: start: 20090311, end: 20090311

REACTIONS (22)
  - ACTIVATED PARTIAL THROMBOPLASTIN TIME PROLONGED [None]
  - AORTIC VALVE SCLEROSIS [None]
  - BLOOD SODIUM DECREASED [None]
  - CHRONIC OBSTRUCTIVE PULMONARY DISEASE [None]
  - CONSTIPATION [None]
  - DEHYDRATION [None]
  - DYSPNOEA [None]
  - FLUID RETENTION [None]
  - HAEMOGLOBIN DECREASED [None]
  - HYPERGLYCAEMIA [None]
  - HYPOTENSION [None]
  - INTERNATIONAL NORMALISED RATIO DECREASED [None]
  - LEFT VENTRICULAR HYPERTROPHY [None]
  - MITRAL VALVE INCOMPETENCE [None]
  - ORAL ALLERGY SYNDROME [None]
  - PNEUMONIA [None]
  - POLLAKIURIA [None]
  - PULMONARY HYPERTENSION [None]
  - RESPIRATORY FAILURE [None]
  - SINUS TACHYCARDIA [None]
  - THROAT TIGHTNESS [None]
  - TRICUSPID VALVE INCOMPETENCE [None]
